FAERS Safety Report 6942007-6 (Version None)
Quarter: 2010Q3

REPORT INFORMATION
  Report Type: 
  Country: None (occurrence: None)
  Receive Date: 20100826
  Receipt Date: 20100823
  Transmission Date: 20110219
  Serious: Yes (Death, Other)
  Sender: FDA-Public Use
  Company Number: US-ASTRAZENECA-2007UW01263

PATIENT
  Age: 17109 Day
  Sex: Female
  Weight: 103 kg

DRUGS (4)
  1. SEROQUEL [Suspect]
     Indication: DEPRESSION
     Route: 048
     Dates: start: 20010918, end: 20050228
  2. SEROQUEL [Suspect]
     Indication: HALLUCINATION, AUDITORY
     Route: 048
     Dates: start: 20010918, end: 20050228
  3. ABILIFY [Concomitant]
     Dates: start: 20040101, end: 20070101
  4. RISPERDAL [Concomitant]

REACTIONS (3)
  - DEATH [None]
  - DIABETIC KETOACIDOSIS [None]
  - TYPE 2 DIABETES MELLITUS [None]
